FAERS Safety Report 7606862-9 (Version None)
Quarter: 2011Q3

REPORT INFORMATION
  Report Type: 
  Country: None (occurrence: None)
  Receive Date: 20110713
  Receipt Date: 20090826
  Transmission Date: 20111222
  Serious: Yes (Other)
  Sender: FDA-Public Use
  Company Number: GB-GLAXOSMITHKLINE-B0590255B

PATIENT
  Sex: Male

DRUGS (3)
  1. CERVARIX [Suspect]
     Dosage: 1INJ SINGLE DOSE
     Route: 064
     Dates: start: 20090813, end: 20090813
  2. CERVARIX [Suspect]
     Indication: PROPHYLAXIS
     Dosage: 1INJ SINGLE DOSE
     Route: 064
     Dates: start: 20090717, end: 20090717
  3. ACYCLOVIR [Suspect]
     Indication: VARICELLA
     Dosage: 4G PER DAY
     Route: 064
     Dates: start: 20090508, end: 20090515

REACTIONS (2)
  - MATERNAL EXPOSURE DURING PREGNANCY [None]
  - ANKYLOGLOSSIA CONGENITAL [None]
